FAERS Safety Report 10567988 (Version 2)
Quarter: 2014Q4

REPORT INFORMATION
  Report Type: Report from Study
  Country: US (occurrence: US)
  Receive Date: 20141106
  Receipt Date: 20141106
  Transmission Date: 20150529
  Serious: Yes (Other)
  Sender: FDA-Public Use
  Company Number: US-SA-2014SA146976

PATIENT
  Age: 53 Year
  Sex: Male

DRUGS (1)
  1. LANTUS [Suspect]
     Active Substance: INSULIN GLARGINE
     Indication: TYPE 2 DIABETES MELLITUS
     Dosage: DOSE: 20 UNSPECIFIED UNITS
     Route: 065
     Dates: start: 20141020

REACTIONS (5)
  - Weight decreased [Unknown]
  - Blood glucose increased [Unknown]
  - Headache [Unknown]
  - Visual impairment [Unknown]
  - Nightmare [Unknown]

NARRATIVE: CASE EVENT DATE: 20141020
